FAERS Safety Report 6752537-8 (Version None)
Quarter: 2010Q2

REPORT INFORMATION
  Report Type: 
  Country: None (occurrence: None)
  Receive Date: 20100602
  Receipt Date: 20100514
  Transmission Date: 20101027
  Serious: Yes (Hospitalization)
  Sender: FDA-Public Use
  Company Number: DE-GENENTECH-301797

PATIENT
  Sex: Female

DRUGS (10)
  1. RITUXIMAB [Suspect]
     Indication: DIFFUSE LARGE B-CELL LYMPHOMA
     Dosage: UNK
     Route: 042
  2. ASPIRIN [Concomitant]
     Dosage: UNK
  3. OMEPRAZOLE [Concomitant]
     Dosage: UNK
  4. METOPROLOL [Concomitant]
     Dosage: METOPROLOL STADA
  5. HCT HEXAL [Concomitant]
     Dosage: UNK
  6. SIMVAHEXAL [Concomitant]
     Dosage: UNK
  7. VIGANTOLETTEN [Concomitant]
     Dosage: UNK
  8. METHIONINE [Concomitant]
     Dosage: METHIONINE AL 500 MG
  9. LIMPTAR [Concomitant]
     Dosage: UNK
  10. METOPROLOL TARTRATE [Concomitant]
     Dosage: UNK

REACTIONS (1)
  - CERVIX CARCINOMA [None]
